FAERS Safety Report 4368087-2 (Version None)
Quarter: 2004Q2

REPORT INFORMATION
  Report Type: 
  Country: None (occurrence: None)
  Receive Date: 20040526
  Receipt Date: 20030825
  Transmission Date: 20050107
  Serious: Yes (Life-Threatening)
  Sender: FDA-Public Use
  Company Number: PIR 0309002

PATIENT
  Age: 60 Year
  Sex: Male

DRUGS (1)
  1. HESPAN [Suspect]
     Indication: SURGERY
     Dosage: 500 ML IV
     Route: 042

REACTIONS (2)
  - CARDIAC FAILURE CONGESTIVE [None]
  - HYPERTENSION [None]
